FAERS Safety Report 6651108-1 (Version None)
Quarter: 2010Q1

REPORT INFORMATION
  Report Type: 
  Country: None (occurrence: None)
  Receive Date: 20100325
  Receipt Date: 20100222
  Transmission Date: 20100710
  Serious: No
  Sender: FDA-Public Use
  Company Number: US-BAYER-201012489BCC

PATIENT
  Age: 61 Year
  Sex: Female
  Weight: 73 kg

DRUGS (5)
  1. ALEVE (CAPLET) [Suspect]
     Indication: PAIN IN EXTREMITY
     Dosage: TOTAL DAILY DOSE: 220 MG  UNIT DOSE: 220 MG
     Route: 048
     Dates: start: 20100221
  2. TYLENOL (CAPLET) [Suspect]
     Indication: PAIN IN EXTREMITY
     Dosage: TOTAL DAILY DOSE: 1 DF  UNIT DOSE: 1 DF
     Route: 065
     Dates: start: 20100221
  3. LIPITOR [Concomitant]
     Route: 065
  4. ATENOLOL [Concomitant]
     Route: 065
  5. GABAPENTIN [Concomitant]
     Route: 065

REACTIONS (3)
  - DIZZINESS [None]
  - FEELING JITTERY [None]
  - INSOMNIA [None]
